FAERS Safety Report 23683474 (Version 1)
Quarter: 2024Q1

REPORT INFORMATION
  Report Type: Spontaneous
  Country: RU (occurrence: RU)
  Receive Date: 20240328
  Receipt Date: 20240328
  Transmission Date: 20240409
  Serious: Yes (Other)
  Sender: FDA-Public Use
  Company Number: RU-SA-SAC20240326001193

PATIENT
  Age: 78 Year
  Sex: Male

DRUGS (1)
  1. ISATUXIMAB [Suspect]
     Active Substance: ISATUXIMAB
     Indication: Plasma cell myeloma
     Dosage: UNK
     Route: 065
     Dates: start: 202206, end: 202308

REACTIONS (2)
  - Gangrene [Unknown]
  - Pneumonia [Unknown]

NARRATIVE: CASE EVENT DATE: 20221017
